FAERS Safety Report 8103846-1 (Version None)
Quarter: 2012Q1

REPORT INFORMATION
  Report Type: 
  Country: None (occurrence: None)
  Receive Date: 20120201
  Receipt Date: 20120121
  Transmission Date: 20120608
  Serious: Yes (Hospitalization)
  Sender: FDA-Public Use
  Company Number: PHHY2012BE005805

PATIENT
  Age: 69 Year
  Sex: Female

DRUGS (7)
  1. AZATHIOPRINE [Concomitant]
     Indication: LIVER TRANSPLANT
     Dates: start: 20100401
  2. CLARITHROMYCIN [Concomitant]
     Dosage: 500 MG, Q 12H
     Route: 048
  3. GANCICLOVIR [Concomitant]
  4. PIPERACILLIN AND TAZOBACTAM [Concomitant]
     Dosage: 4 G EVERY 8 H (Q8H)
     Route: 042
  5. CYCLOSPORINE [Suspect]
     Indication: LIVER TRANSPLANT
     Dates: start: 20100401
  6. METHYLPREDNISOLONE [Concomitant]
     Dosage: 32 MG, UNK
  7. STEROIDS NOS [Concomitant]

REACTIONS (13)
  - FATIGUE [None]
  - CROHN'S DISEASE [None]
  - ABDOMINAL PAIN [None]
  - CYTOMEGALOVIRUS COLITIS [None]
  - ABDOMINAL TENDERNESS [None]
  - DIARRHOEA [None]
  - DIARRHOEA HAEMORRHAGIC [None]
  - ABDOMINAL DISCOMFORT [None]
  - HAEMATOCHEZIA [None]
  - BACTERAEMIA [None]
  - ANAEMIA [None]
  - DEHYDRATION [None]
  - PYREXIA [None]
